FAERS Safety Report 8078164-0 (Version None)
Quarter: 2012Q1

REPORT INFORMATION
  Report Type: 
  Country: None (occurrence: None)
  Receive Date: 20120127
  Receipt Date: 20110623
  Transmission Date: 20120608
  Serious: No
  Sender: FDA-Public Use
  Company Number: US-BAUSCH-2011BL004127

PATIENT
  Age: 66 Year
  Sex: Female

DRUGS (1)
  1. ZYLET [Suspect]
     Indication: PRODUCT USED FOR UNKNOWN INDICATION
     Route: 047
     Dates: start: 20110501, end: 20110501

REACTIONS (1)
  - HYPERSENSITIVITY [None]
